FAERS Safety Report 9237289 (Version 1)
Quarter: 2013Q2

REPORT INFORMATION
  Report Type: Spontaneous
  Country: NG (occurrence: NG)
  Receive Date: 20130417
  Receipt Date: 20130417
  Transmission Date: 20140414
  Serious: Yes (Hospitalization)
  Sender: FDA-Public Use
  Company Number: NG-MYLANLABS-2013S1007685

PATIENT
  Age: 40 Year
  Sex: Female

DRUGS (4)
  1. TRUVADA [Suspect]
     Indication: HIV INFECTION
     Dosage: A TABLET OF EMTRICITABINE 300MG/TENOFOVIR DISOPROXIL FUMARATE 300MG DAILY
     Route: 065
  2. NEVIRAPINE [Suspect]
     Indication: HIV INFECTION
     Route: 065
  3. PARACETAMOL [Concomitant]
     Indication: ANALGESIC THERAPY
     Route: 065
  4. PIROXICAM [Concomitant]
     Indication: ANALGESIC THERAPY
     Route: 065

REACTIONS (3)
  - Immune reconstitution inflammatory syndrome [Unknown]
  - Condition aggravated [Recovering/Resolving]
  - Dermatomyositis [Recovering/Resolving]
